FAERS Safety Report 4813681-5 (Version None)
Quarter: 2005Q4

REPORT INFORMATION
  Report Type: 
  Country: None (occurrence: None)
  Receive Date: 20051028
  Receipt Date: 20050504
  Transmission Date: 20060501
  Serious: No
  Sender: FDA-Public Use
  Company Number: US-GLAXOSMITHKLINE-A0557440A

PATIENT
  Age: 34 Year
  Sex: Female

DRUGS (7)
  1. IMITREX [Suspect]
     Indication: MIGRAINE
     Dosage: 20MG AS REQUIRED
     Route: 045
     Dates: start: 20050503
  2. IMITREX [Suspect]
     Route: 048
  3. WELLBUTRIN XL [Concomitant]
  4. SYNTHROID [Concomitant]
  5. LAMICTAL [Concomitant]
  6. TOPAMAX [Concomitant]
     Indication: MIGRAINE PROPHYLAXIS
  7. YASMIN [Concomitant]

REACTIONS (4)
  - CHEST DISCOMFORT [None]
  - DRUG INEFFECTIVE [None]
  - HYPOAESTHESIA [None]
  - PAIN IN EXTREMITY [None]
